FAERS Safety Report 5092013-4 (Version None)
Quarter: 2006Q3

REPORT INFORMATION
  Report Type: 
  Country: None (occurrence: None)
  Receive Date: 20060825
  Receipt Date: 20060808
  Transmission Date: 20061208
  Serious: Yes (Hospitalization)
  Sender: FDA-Public Use
  Company Number: CA200607004337

PATIENT
  Age: 70 Year
  Sex: Male
  Weight: 64.2 kg

DRUGS (10)
  1. GEMCITABINE HYDROCHLORIDE [Suspect]
     Indication: PANCREATIC CARCINOMA
     Dosage: 1800 MG, WEEKLY (1/W), INTRAVENOUS
     Route: 042
     Dates: start: 20060427, end: 20060603
  2. OTHER PHARMA COMPANY INVESTIGATIONAL DRUG UNKNOWN FORMULATION) [Suspect]
     Indication: PANCREATIC CARCINOMA
     Dosage: 5 MG, 2/D, ORAL
     Route: 048
     Dates: start: 20060427, end: 20060621
  3. RANITIDINE [Concomitant]
  4. CENTRUM                   (MINERALS NOS, VITAMINS NOS) [Concomitant]
  5. ACETAMINOPHEN [Concomitant]
  6. LACTULOSE [Concomitant]
  7. METOCLOPRAMIDE [Concomitant]
  8. MORPHINE [Concomitant]
  9. HYDROCHLOROTHIAZIDE [Concomitant]
  10. CELEXA [Concomitant]

REACTIONS (7)
  - ABDOMINAL PAIN [None]
  - CONSTIPATION [None]
  - DISEASE PROGRESSION [None]
  - INTESTINAL ISCHAEMIA [None]
  - INTESTINAL PERFORATION [None]
  - NAUSEA [None]
  - PNEUMATOSIS INTESTINALIS [None]
